FAERS Safety Report 6142101-6 (Version None)
Quarter: 2009Q2

REPORT INFORMATION
  Report Type: 
  Country: None (occurrence: None)
  Receive Date: 20090402
  Receipt Date: 20090331
  Transmission Date: 20091009
  Serious: No
  Sender: FDA-Public Use
  Company Number: US-B.I. PHARMACEUTICALS,INC./RIDGEFIELD-2009-BP-03088BP

PATIENT
  Age: 67 Year
  Sex: Female

DRUGS (10)
  1. SPIRIVA [Suspect]
     Indication: CHRONIC OBSTRUCTIVE PULMONARY DISEASE
     Dosage: 18MCG
     Route: 055
     Dates: start: 20080101
  2. PREVACID [Concomitant]
     Indication: GASTROOESOPHAGEAL REFLUX DISEASE
  3. CELEBREX [Concomitant]
     Indication: ARTHRITIS
  4. PLAVIX [Concomitant]
     Indication: AORTIC VALVE DISEASE
  5. CRESTOR [Concomitant]
     Indication: BLOOD CHOLESTEROL INCREASED
  6. ULTRAM [Concomitant]
     Indication: BONE DISORDER
  7. TRAMADOLE [Concomitant]
     Indication: BONE DISORDER
  8. KLONOPIN [Concomitant]
     Indication: ANXIETY
  9. TOPROL-XL [Concomitant]
     Indication: BLOOD PRESSURE INCREASED
  10. ASPIRIN [Concomitant]
     Indication: PROPHYLAXIS

REACTIONS (2)
  - DYSPNOEA [None]
  - MALAISE [None]
